FAERS Safety Report 10458370 (Version 2)
Quarter: 2014Q4

REPORT INFORMATION
  Report Type: Spontaneous
  Country: GB (occurrence: GB)
  Receive Date: 20140917
  Receipt Date: 20141027
  Transmission Date: 20150528
  Serious: Yes (Hospitalization)
  Sender: FDA-Public Use
  Company Number: GB-JNJFOC-20140910638

PATIENT
  Sex: Female

DRUGS (2)
  1. NICORETTE [Suspect]
     Active Substance: NICOTINE
     Indication: PRODUCT USED FOR UNKNOWN INDICATION
     Route: 065
  2. NIQUITIN [Suspect]
     Active Substance: NICOTINE
     Indication: PRODUCT USED FOR UNKNOWN INDICATION
     Route: 065

REACTIONS (6)
  - Malaise [Unknown]
  - Dizziness [Unknown]
  - Palpitations [Unknown]
  - Vomiting [Unknown]
  - Chest pain [Unknown]
  - Nausea [Unknown]
